FAERS Safety Report 12109642 (Version 2)
Quarter: 2016Q1

REPORT INFORMATION
  Report Type: Spontaneous
  Country: US (occurrence: US)
  Receive Date: 20160224
  Receipt Date: 20160226
  Transmission Date: 20160526
  Serious: Yes (Hospitalization)
  Sender: FDA-Public Use
  Company Number: US-GLAXOSMITHKLINE-US2016022522

PATIENT
  Sex: Female

DRUGS (10)
  1. BREO ELLIPTA [Suspect]
     Active Substance: FLUTICASONE FUROATE\VILANTEROL TRIFENATATE
     Indication: CHRONIC OBSTRUCTIVE PULMONARY DISEASE
     Dosage: 100/25 1 PUFF, QD
     Route: 055
     Dates: start: 20160210
  2. METOPROLOL TARTRATE. [Concomitant]
     Active Substance: METOPROLOL TARTRATE
  3. DIGOXIN. [Concomitant]
     Active Substance: DIGOXIN
  4. LOSARTAN POTASSIUM. [Concomitant]
     Active Substance: LOSARTAN POTASSIUM
  5. MELATONIN [Concomitant]
     Active Substance: MELATONIN
  6. ADVAIR DISKUS [Suspect]
     Active Substance: FLUTICASONE PROPIONATE\SALMETEROL XINAFOATE
     Indication: CHRONIC OBSTRUCTIVE PULMONARY DISEASE
     Dosage: 500/50 MCG 1 PUFF, BID
     Route: 055
     Dates: start: 2001, end: 201602
  7. ZANTAC [Concomitant]
     Active Substance: RANITIDINE HYDROCHLORIDE
  8. ALLOPURINOL. [Concomitant]
     Active Substance: ALLOPURINOL
  9. FUROSEMIDE. [Concomitant]
     Active Substance: FUROSEMIDE
  10. WARFARIN [Concomitant]
     Active Substance: WARFARIN

REACTIONS (15)
  - Hypertension [Not Recovered/Not Resolved]
  - Cardiomegaly [Unknown]
  - Feeding disorder [Unknown]
  - Dyspnoea exertional [Unknown]
  - Drug dose omission [Unknown]
  - Heart rate irregular [Unknown]
  - Gallbladder disorder [Unknown]
  - Movement disorder [Unknown]
  - Underdose [Unknown]
  - Cardiac disorder [Not Recovered/Not Resolved]
  - Heart valve incompetence [Unknown]
  - Gout [Not Recovered/Not Resolved]
  - Drug ineffective [Unknown]
  - Gastric disorder [Unknown]
  - Inability to afford medication [Unknown]

NARRATIVE: CASE EVENT DATE: 2009
